FAERS Safety Report 18984054 (Version 2)
Quarter: 2021Q3

REPORT INFORMATION
  Report Type: Spontaneous
  Country: US (occurrence: US)
  Receive Date: 20210309
  Receipt Date: 20210923
  Transmission Date: 20211014
  Serious: Yes (Other)
  Sender: FDA-Public Use
  Company Number: US-GILEAD-2021-0519930

PATIENT
  Sex: Male
  Weight: 54.42 kg

DRUGS (9)
  1. LISINOPRIL. [Concomitant]
     Active Substance: LISINOPRIL
  2. CLONAZEPAM. [Concomitant]
     Active Substance: CLONAZEPAM
  3. BIKTARVY [Concomitant]
     Active Substance: BICTEGRAVIR SODIUM\EMTRICITABINE\TENOFOVIR ALAFENAMIDE FUMARATE
  4. REYATAZ [Concomitant]
     Active Substance: ATAZANAVIR SULFATE
  5. VIREAD [Suspect]
     Active Substance: TENOFOVIR DISOPROXIL FUMARATE
     Indication: HIV INFECTION
     Dosage: UNK
     Route: 048
     Dates: start: 2000, end: 2016
  6. DESCOVY [Concomitant]
     Active Substance: EMTRICITABINE\TENOFOVIR ALAFENAMIDE FUMARATE
  7. ISENTRESS [Concomitant]
     Active Substance: RALTEGRAVIR POTASSIUM
  8. NORVIR [Concomitant]
     Active Substance: RITONAVIR
  9. QUETIAPINE. [Concomitant]
     Active Substance: QUETIAPINE

REACTIONS (16)
  - Adverse drug reaction [Unknown]
  - Anhedonia [Not Recovered/Not Resolved]
  - Hyperparathyroidism [Not Recovered/Not Resolved]
  - Bone disorder [Unknown]
  - Chronic kidney disease [Not Recovered/Not Resolved]
  - Tibia fracture [Recovered/Resolved]
  - Nephrolithiasis [Unknown]
  - Lower limb fracture [Recovered/Resolved]
  - Quality of life decreased [Not Recovered/Not Resolved]
  - Pain [Not Recovered/Not Resolved]
  - Stress [Not Recovered/Not Resolved]
  - Osteoporosis [Not Recovered/Not Resolved]
  - Emotional distress [Not Recovered/Not Resolved]
  - Anxiety [Not Recovered/Not Resolved]
  - Mobility decreased [Not Recovered/Not Resolved]
  - Asthenia [Not Recovered/Not Resolved]

NARRATIVE: CASE EVENT DATE: 2003
